FAERS Safety Report 5195854-8 (Version None)
Quarter: 2007Q1

REPORT INFORMATION
  Report Type: 
  Country: None (occurrence: None)
  Receive Date: 20070102
  Receipt Date: 20061219
  Transmission Date: 20070707
  Serious: Yes (Other)
  Sender: FDA-Public Use
  Company Number: GB-PFIZER INC-2006156116

PATIENT
  Sex: Male

DRUGS (1)
  1. EXUBERA [Suspect]

REACTIONS (1)
  - INCORRECT DOSE ADMINISTERED [None]
